FAERS Safety Report 10794693 (Version 2)
Quarter: 2015Q1

REPORT INFORMATION
  Report Type: Spontaneous
  Country: MX (occurrence: MX)
  Receive Date: 20150213
  Receipt Date: 20150224
  Transmission Date: 20150721
  Serious: Yes (Other)
  Sender: FDA-Public Use
  Company Number: PHHY2010MX79304

PATIENT
  Age: 83 Year
  Sex: Female

DRUGS (6)
  1. GENTEAL MILD [Suspect]
     Active Substance: HYPROMELLOSE 2910 (4000 MPA.S)
     Indication: DRY EYE
     Dosage: 4 GTT, QD (3 OR 4)
     Route: 065
     Dates: start: 200801
  2. CHLORTHALIDONE. [Concomitant]
     Active Substance: CHLORTHALIDONE
     Indication: CARDIAC DISORDER
     Dosage: 1 OT, DAILY (IN THE MORNING)
     Route: 065
  3. TETRAZOL [Concomitant]
     Indication: PRODUCT USED FOR UNKNOWN INDICATION
     Route: 065
  4. GENTEAL MILD [Suspect]
     Active Substance: HYPROMELLOSE 2910 (4000 MPA.S)
     Indication: VISUAL IMPAIRMENT
  5. VITAMIN B [Concomitant]
     Active Substance: VITAMIN B
     Indication: PRODUCT USED FOR UNKNOWN INDICATION
     Route: 065
  6. PROPAFENONE. [Concomitant]
     Active Substance: PROPAFENONE
     Indication: CARDIAC DISORDER
     Dosage: 0.5 OT, DAILY (AT ANY TIME)
     Route: 065

REACTIONS (7)
  - Facial bones fracture [Not Recovered/Not Resolved]
  - Fall [Not Recovered/Not Resolved]
  - Cough [Recovered/Resolved]
  - Lymph node calcification [Unknown]
  - Memory impairment [Recovering/Resolving]
  - Blood pressure abnormal [Recovered/Resolved]
  - Nasal turbinate abnormality [Not Recovered/Not Resolved]

NARRATIVE: CASE EVENT DATE: 201405
